FAERS Safety Report 6570795-X (Version None)
Quarter: 2010Q1

REPORT INFORMATION
  Report Type: 
  Country: None (occurrence: None)
  Receive Date: 20100204
  Receipt Date: 20100126
  Transmission Date: 20100710
  Serious: Yes (Life-Threatening, Hospitalization, Other)
  Sender: FDA-Public Use
  Company Number: DE-ABBOTT-09P-062-0594200-00

PATIENT
  Sex: Male
  Weight: 100 kg

DRUGS (10)
  1. HUMIRA [Suspect]
     Indication: RHEUMATOID ARTHRITIS
     Route: 058
     Dates: start: 20070201, end: 20090801
  2. METHOTREXATE [Concomitant]
     Indication: DRUG USE FOR UNKNOWN INDICATION
     Dates: start: 20040816, end: 20050217
  3. METHOTREXATE [Concomitant]
     Dates: start: 20050816, end: 20060217
  4. METHOTREXATE [Concomitant]
     Dates: start: 20060904, end: 20090827
  5. GLUCOCORTICOIDS [Concomitant]
     Indication: DRUG USE FOR UNKNOWN INDICATION
  6. LEFLUNOMIDE [Concomitant]
     Indication: DRUG USE FOR UNKNOWN INDICATION
  7. SULFASALAZINE [Concomitant]
     Indication: DRUG USE FOR UNKNOWN INDICATION
  8. CHLOROQUINE PHOSPHATE [Concomitant]
     Indication: DRUG USE FOR UNKNOWN INDICATION
  9. RAMIPRIL [Concomitant]
     Indication: DRUG USE FOR UNKNOWN INDICATION
  10. DIURETICS [Concomitant]
     Indication: DRUG USE FOR UNKNOWN INDICATION

REACTIONS (2)
  - CHRONIC MYELOID LEUKAEMIA [None]
  - LEUKOCYTOSIS [None]
